FAERS Safety Report 14350676 (Version 1)
Quarter: 2018Q1

REPORT INFORMATION
  Report Type: Spontaneous
  Country: US (occurrence: US)
  Receive Date: 20180104
  Receipt Date: 20180104
  Transmission Date: 20180509
  Serious: Yes (Death)
  Sender: FDA-Public Use
  Company Number: US-SA-2017SA269280

PATIENT
  Age: 53 Year
  Sex: Female

DRUGS (3)
  1. HEROIN [Suspect]
     Active Substance: DIAMORPHINE
     Route: 065
  2. DIPHENHYDRAMINE. [Suspect]
     Active Substance: DIPHENHYDRAMINE
     Route: 065
  3. FENTANYL. [Suspect]
     Active Substance: FENTANYL
     Route: 065

REACTIONS (2)
  - Accidental poisoning [Fatal]
  - Toxicity to various agents [Fatal]
